APPROVED DRUG PRODUCT: SODIUM CHLORIDE
Active Ingredient: SODIUM CHLORIDE
Strength: 20GM/100ML
Dosage Form/Route: INJECTABLE;INJECTION
Application: N017038 | Product #001
Applicant: B BRAUN MEDICAL INC
Approved: Approved Prior to Jan 1, 1982 | RLD: No | RS: No | Type: DISCN